FAERS Safety Report 6568931-4 (Version None)
Quarter: 2010Q1

REPORT INFORMATION
  Report Type: 
  Country: None (occurrence: None)
  Receive Date: 20100128
  Receipt Date: 20100118
  Transmission Date: 20100710
  Serious: Yes (Other)
  Sender: FDA-Public Use
  Company Number: 2010SP003671

PATIENT
  Sex: Female

DRUGS (1)
  1. REMERGIL (MIRTAZAPINE /01293201/) [Suspect]
     Indication: DRUG USE FOR UNKNOWN INDICATION

REACTIONS (5)
  - EOSINOPHILIA [None]
  - MASS [None]
  - NASOPHARYNGITIS [None]
  - OEDEMA [None]
  - THYROID DISORDER [None]
